FAERS Safety Report 20632712 (Version 1)
Quarter: 2022Q1

REPORT INFORMATION
  Report Type: Spontaneous
  Country: GB (occurrence: GB)
  Receive Date: 20220324
  Receipt Date: 20220324
  Transmission Date: 20220423
  Serious: Yes (Other)
  Sender: FDA-Public Use
  Company Number: None

PATIENT
  Age: 35 Year
  Sex: Female
  Weight: 55 kg

DRUGS (11)
  1. IVABRADINE [Suspect]
     Active Substance: IVABRADINE
     Indication: Postural orthostatic tachycardia syndrome
     Dosage: 5MG MORNING, 2.5MG LUNCH, 2.5MG 3PM
     Route: 065
     Dates: start: 20220201, end: 20220304
  2. CLARITHROMYCIN [Concomitant]
     Active Substance: CLARITHROMYCIN
     Indication: Localised infection
     Dosage: 500 MG, BID
     Dates: start: 20220228, end: 20220304
  3. CETIRIZINE [Concomitant]
     Active Substance: CETIRIZINE HYDROCHLORIDE
     Indication: Mast cell activation syndrome
     Dosage: UNK
     Dates: start: 20080101
  4. FLUDROCORTISONE [Concomitant]
     Active Substance: FLUDROCORTISONE
     Indication: Postural orthostatic tachycardia syndrome
     Dosage: UNK
     Dates: start: 20170501
  5. FAMOTIDINE [Concomitant]
     Active Substance: FAMOTIDINE
     Indication: Mast cell activation syndrome
     Dosage: UNK
     Dates: start: 20211101
  6. GABAPENTIN [Concomitant]
     Active Substance: GABAPENTIN
     Indication: Neuralgia
     Dosage: UNK
     Dates: start: 20060101
  7. IVABRADINE [Concomitant]
     Active Substance: IVABRADINE
     Indication: Postural orthostatic tachycardia syndrome
     Dosage: 10 MG, QD
     Dates: start: 20211128
  8. MIDODRINE [Concomitant]
     Active Substance: MIDODRINE
     Indication: Postural orthostatic tachycardia syndrome
     Dosage: UNK
     Dates: start: 20140801
  9. MONTELUKAST [Concomitant]
     Active Substance: MONTELUKAST SODIUM
     Indication: Childhood asthma
     Dosage: UNK
     Dates: start: 20210501
  10. SYMBICORT [Concomitant]
     Active Substance: BUDESONIDE\FORMOTEROL FUMARATE DIHYDRATE
     Indication: Asthma
     Dosage: UNK
     Dates: start: 20081001
  11. NALOXONE HYDROCHLORIDE\OXYCODONE HYDROCHLORIDE [Concomitant]
     Active Substance: NALOXONE HYDROCHLORIDE\OXYCODONE HYDROCHLORIDE
     Indication: Product used for unknown indication
     Dosage: UNK
     Dates: start: 20101001

REACTIONS (12)
  - Malaise [Not Recovered/Not Resolved]
  - Syncope [Recovering/Resolving]
  - Presyncope [Not Recovered/Not Resolved]
  - Visual impairment [Not Recovered/Not Resolved]
  - Abdominal distension [Not Recovered/Not Resolved]
  - Vomiting [Recovering/Resolving]
  - Abdominal pain [Not Recovered/Not Resolved]
  - Headache [Not Recovered/Not Resolved]
  - Fatigue [Recovering/Resolving]
  - Sinus bradycardia [Not Recovered/Not Resolved]
  - Medication error [Unknown]
  - Off label use [Unknown]

NARRATIVE: CASE EVENT DATE: 20220203
